FAERS Safety Report 12282222 (Version 1)
Quarter: 2016Q2

REPORT INFORMATION
  Report Type: Spontaneous
  Country: US (occurrence: None)
  Receive Date: 20160418
  Receipt Date: 20160418
  Transmission Date: 20160815
  Serious: Yes (Other)
  Sender: FDA-Public Use
  Company Number: None

PATIENT
  Sex: Male
  Weight: 50.8 kg

DRUGS (3)
  1. TAMIFLU [Suspect]
     Active Substance: OSELTAMIVIR PHOSPHATE
     Indication: INFLUENZA
     Route: 048
     Dates: start: 20160411, end: 20160414
  2. CLARITIN [Concomitant]
     Active Substance: LORATADINE
  3. VICKS DAYQUIL [Concomitant]
     Active Substance: DEXTROMETHORPHAN HYDROBROMIDE\GUAIFENESIN

REACTIONS (6)
  - Anaphylactoid reaction [None]
  - Nausea [None]
  - Dyspnoea [None]
  - Abdominal pain [None]
  - Throat tightness [None]
  - Chest pain [None]

NARRATIVE: CASE EVENT DATE: 20160413
